FAERS Safety Report 26184943 (Version 1)
Quarter: 2025Q4

REPORT INFORMATION
  Report Type: Spontaneous
  Country: US (occurrence: US)
  Receive Date: 20251222
  Receipt Date: 20251222
  Transmission Date: 20260118
  Serious: No
  Sender: BAUSCH AND LOMB
  Company Number: US-BAUSCHBL-2025BNL033712

PATIENT
  Sex: Female

DRUGS (1)
  1. ALREX [Suspect]
     Active Substance: LOTEPREDNOL ETABONATE
     Indication: Off label use
     Route: 047

REACTIONS (5)
  - Eye inflammation [Unknown]
  - Visual impairment [Unknown]
  - Eye irritation [Unknown]
  - Ocular hyperaemia [Unknown]
  - Off label use [Unknown]
